FAERS Safety Report 25174389 (Version 1)
Quarter: 2025Q2

REPORT INFORMATION
  Report Type: Spontaneous
  Country: CN (occurrence: CN)
  Receive Date: 20250408
  Receipt Date: 20250408
  Transmission Date: 20250717
  Serious: Yes (Other)
  Sender: JOHNSON AND JOHNSON
  Company Number: CN-JNJFOC-20250388644

PATIENT
  Age: 65 Year
  Sex: Female

DRUGS (1)
  1. DARZALEX [Suspect]
     Active Substance: DARATUMUMAB
     Indication: Plasma cell myeloma
     Route: 041
     Dates: start: 20250307, end: 20250308

REACTIONS (5)
  - Dyspnoea [Recovering/Resolving]
  - Blood pressure increased [Recovering/Resolving]
  - Hyperhidrosis [Recovering/Resolving]
  - Tachypnoea [Recovering/Resolving]
  - Infusion related reaction [Recovering/Resolving]

NARRATIVE: CASE EVENT DATE: 20250307
